FAERS Safety Report 8396545-2 (Version None)
Quarter: 2012Q2

REPORT INFORMATION
  Report Type: 
  Country: None (occurrence: None)
  Receive Date: 20120530
  Receipt Date: 20120517
  Transmission Date: 20120825
  Serious: Yes (Hospitalization)
  Sender: FDA-Public Use
  Company Number: US-CELGENEUS-163-AB007-12052196

PATIENT
  Sex: Male
  Weight: 91.708 kg

DRUGS (12)
  1. LISINOPRIL [Concomitant]
     Indication: HYPERTENSION
     Dosage: 10 MILLIGRAM
     Route: 048
     Dates: start: 20080101
  2. EMLA [Concomitant]
     Route: 061
  3. ASPIRIN [Concomitant]
     Indication: PROPHYLAXIS
     Dosage: 81 MILLIGRAM
     Route: 048
     Dates: start: 20020101
  4. ABRAXANE [Suspect]
     Dosage: 125 MILLIGRAM/SQ. METER
     Route: 041
     Dates: start: 20120214
  5. HYDROCODONE BITARTRATE [Concomitant]
     Route: 065
  6. GEMCITABINE [Suspect]
     Dosage: 800 MILLIGRAM/SQ. METER
     Route: 041
     Dates: start: 20120501
  7. ABRAXANE [Suspect]
     Dosage: 100 MILLIGRAM/SQ. METER
     Route: 041
     Dates: start: 20120501
  8. PROCHLORPERAZINE [Concomitant]
     Route: 065
  9. GEMCITABINE [Suspect]
     Dosage: 1000 MILLIGRAM/SQ. METER
     Route: 041
     Dates: start: 20120214
  10. OXYCODONE HCL [Concomitant]
     Indication: PAIN
     Dosage: 10 MILLIGRAM
     Route: 048
     Dates: start: 20120320
  11. VITAMIN C AND E [Concomitant]
     Dosage: 1 TABLET
     Route: 048
     Dates: start: 20020101
  12. FLUIDS [Concomitant]
     Route: 041
     Dates: start: 20120101

REACTIONS (1)
  - ASCITES [None]
